FAERS Safety Report 23747834 (Version 1)
Quarter: 2024Q2

REPORT INFORMATION
  Report Type: Spontaneous
  Country: IT (occurrence: IT)
  Receive Date: 20240416
  Receipt Date: 20240416
  Transmission Date: 20240716
  Serious: Yes (Other)
  Sender: FDA-Public Use
  Company Number: None

PATIENT
  Age: 62 Year
  Sex: Male
  Weight: 95 kg

DRUGS (2)
  1. GEMCITABINE [Suspect]
     Active Substance: GEMCITABINE
     Indication: Pancreatic carcinoma metastatic
     Dosage: START OF THERAPY 12/02/2024 - THERAPY EVERY 28 DAYS, ON DAYS 1,8,15 - 12/02 I CYCLE G1 - 19/02 I ...
     Route: 042
     Dates: start: 20240212, end: 20240219
  2. ABRAXANE [Suspect]
     Active Substance: PACLITAXEL
     Indication: Pancreatic carcinoma metastatic
     Dosage: START OF THERAPY 12/02/2024 - THERAPY EVERY 28 DAYS, ON DAYS 1,8,15 - 12/02 I CYCLE G1 - 19/02 I ...
     Route: 042
     Dates: start: 20240212, end: 20240219

REACTIONS (3)
  - Thrombocytopenia [Recovering/Resolving]
  - Hyperglycaemia [Recovering/Resolving]
  - Alanine aminotransferase increased [Recovering/Resolving]

NARRATIVE: CASE EVENT DATE: 20240216
